FAERS Safety Report 4591921-8 (Version None)
Quarter: 2005Q1

REPORT INFORMATION
  Report Type: 
  Country: None (occurrence: None)
  Receive Date: 20050225
  Receipt Date: 20041022
  Transmission Date: 20050727
  Serious: Yes (Death)
  Sender: FDA-Public Use
  Company Number: US-MERCK-0410USA03524

PATIENT
  Age: 75 Year
  Sex: Male

DRUGS (13)
  1. VIOXX [Suspect]
     Indication: ARTHRITIS
     Route: 048
     Dates: start: 20021209, end: 20030115
  2. VIOXX [Suspect]
     Route: 048
     Dates: start: 20030418, end: 20030801
  3. VIOXX [Suspect]
     Indication: OSTEOARTHRITIS
     Route: 048
     Dates: start: 20021209, end: 20030115
  4. VIOXX [Suspect]
     Route: 048
     Dates: start: 20030418, end: 20030801
  5. ASPIRIN [Concomitant]
     Route: 065
  6. COUMADIN [Concomitant]
     Route: 065
  7. LASIX [Concomitant]
     Route: 065
  8. ZOCOR [Concomitant]
     Route: 048
  9. ISORDIL [Concomitant]
     Route: 065
  10. CAPTOPRIL [Concomitant]
     Route: 065
  11. COREG [Concomitant]
     Route: 065
  12. DIGOXIN [Concomitant]
     Route: 065
  13. POTASSIUM CHLORIDE [Concomitant]
     Route: 065

REACTIONS (1)
  - SUDDEN CARDIAC DEATH [None]
